FAERS Safety Report 4548504-5 (Version None)
Quarter: 2005Q1

REPORT INFORMATION
  Report Type: 
  Country: None (occurrence: None)
  Receive Date: 20050110
  Receipt Date: 20041230
  Transmission Date: 20050727
  Serious: Yes (Hospitalization)
  Sender: FDA-Public Use
  Company Number: FR-GLAXOSMITHKLINE-B0363083A

PATIENT
  Sex: Male
  Weight: 1.6 kg

DRUGS (6)
  1. RETROVIR [Suspect]
     Indication: ANTIVIRAL PROPHYLAXIS
     Dosage: 1.5MGK TWICE PER DAY
     Route: 042
     Dates: start: 20040730
  2. RETROVIR [Suspect]
  3. RETROVIR [Suspect]
  4. EPIVIR [Suspect]
     Indication: HIV INFECTION
  5. VIDEX [Suspect]
     Indication: HIV INFECTION
  6. VIRACEPT [Suspect]
     Indication: HIV INFECTION

REACTIONS (4)
  - ABDOMINAL DISTENSION [None]
  - DRUG EXPOSURE DURING PREGNANCY [None]
  - MECONIUM IN AMNIOTIC FLUID [None]
  - PREMATURE BABY [None]
